FAERS Safety Report 7775957-1 (Version None)
Quarter: 2011Q3

REPORT INFORMATION
  Report Type: 
  Country: None (occurrence: None)
  Receive Date: 20110923
  Receipt Date: 20110915
  Transmission Date: 20111222
  Serious: Yes (Other)
  Sender: FDA-Public Use
  Company Number: GB-MERCK-1109USA00646

PATIENT
  Age: 63 Year
  Sex: Female

DRUGS (4)
  1. LENALIDOMIDE [Suspect]
     Route: 065
  2. VELCADE [Suspect]
     Indication: MULTIPLE MYELOMA
     Route: 065
  3. DECADRON [Suspect]
     Indication: MULTIPLE MYELOMA
     Route: 048
  4. LENALIDOMIDE [Suspect]
     Indication: MULTIPLE MYELOMA
     Route: 065

REACTIONS (1)
  - PANCYTOPENIA [None]
